FAERS Safety Report 5321265-8 (Version None)
Quarter: 2007Q2

REPORT INFORMATION
  Report Type: 
  Country: None (occurrence: None)
  Receive Date: 20070507
  Receipt Date: 20070507
  Transmission Date: 20071010
  Serious: Yes (Hospitalization)
  Sender: FDA-Public Use
  Company Number: None

PATIENT
  Sex: Male
  Weight: 65.8 kg

DRUGS (3)
  1. CYTARABINE [Suspect]
     Dosage: 1218 MG
  2. DAUNORUBICIN HCL [Suspect]
     Dosage: 234.9 MG
  3. MYLOTARG [Suspect]
     Dosage: 10.44 MG

REACTIONS (3)
  - HAEMOTHORAX [None]
  - PLEURAL EFFUSION [None]
  - POST PROCEDURAL COMPLICATION [None]
